FAERS Safety Report 6572325-5 (Version None)
Quarter: 2010Q1

REPORT INFORMATION
  Report Type: 
  Country: None (occurrence: None)
  Receive Date: 20100201
  Receipt Date: 20100115
  Transmission Date: 20100710
  Serious: Yes (Death)
  Sender: FDA-Public Use
  Company Number: AE 2009-152

PATIENT
  Age: 55 Year
  Sex: Male
  Weight: 63.5036 kg

DRUGS (6)
  1. FAZACLO ODT [Suspect]
     Indication: PARANOIA
     Dosage: 600MG DAILY PO
  2. FAZACLO ODT [Suspect]
     Indication: SCHIZOPHRENIA
     Dosage: 600MG DAILY PO
  3. PROLIXIN [Concomitant]
  4. COGENTIN [Concomitant]
  5. REMERON [Concomitant]
  6. KLONOPIN [Concomitant]

REACTIONS (1)
  - RESPIRATORY ARREST [None]
